FAERS Safety Report 6593566-7 (Version None)
Quarter: 2010Q1

REPORT INFORMATION
  Report Type: 
  Country: None (occurrence: None)
  Receive Date: 20100222
  Receipt Date: 20090804
  Transmission Date: 20100710
  Serious: No
  Sender: FDA-Public Use
  Company Number: US-BRISTOL-MYERS SQUIBB COMPANY-14715502

PATIENT
  Age: 48 Year
  Sex: Female

DRUGS (2)
  1. ORENCIA [Suspect]
     Dosage: RECEIVED INFUSION ON 21-JUL-2009 NS TKO RATE@EACH INJ
     Dates: start: 20090721
  2. DEXTROSE [Suspect]
     Dates: start: 20090721

REACTIONS (1)
  - OEDEMA PERIPHERAL [None]
